FAERS Safety Report 6749130-X (Version None)
Quarter: 2010Q2

REPORT INFORMATION
  Report Type: 
  Country: None (occurrence: None)
  Receive Date: 20100601
  Receipt Date: 20100525
  Transmission Date: 20101027
  Serious: Yes (Other)
  Sender: FDA-Public Use
  Company Number: DE-B.I. PHARMACEUTICALS,INC./RIDGEFIELD-2010-DE-02861GD

PATIENT
  Sex: Male

DRUGS (3)
  1. RANITIDINE [Suspect]
     Indication: DUODENAL ULCER
     Dosage: 600 MG
     Route: 048
  2. RANITIDINE [Suspect]
     Indication: ALLERGY TEST
     Dosage: 300 MG
     Route: 048
  3. RANITIDINE [Suspect]
     Dosage: INCREASING DOSES OF 3, 30, 150 MG AT INTERVALS OF 30 MIN
     Route: 048

REACTIONS (11)
  - ABDOMINAL PAIN [None]
  - ANAPHYLACTIC REACTION [None]
  - ANGIOEDEMA [None]
  - BRONCHIAL OBSTRUCTION [None]
  - CONJUNCTIVITIS [None]
  - DYSPNOEA [None]
  - FLUSHING [None]
  - HYPOTENSION [None]
  - LOSS OF CONSCIOUSNESS [None]
  - PRURITUS GENERALISED [None]
  - URTICARIA [None]
